FAERS Safety Report 4355103-7 (Version None)
Quarter: 2004Q2

REPORT INFORMATION
  Report Type: 
  Country: None (occurrence: None)
  Receive Date: 20040504
  Receipt Date: 20040427
  Transmission Date: 20050107
  Serious: Yes (Other)
  Sender: FDA-Public Use
  Company Number: 200410240BYL

PATIENT
  Age: 75 Year
  Sex: Male

DRUGS (8)
  1. ASPIRIN [Suspect]
     Indication: AGE INDETERMINATE MYOCARDIAL INFARCTION
     Dosage: ORAL
     Route: 048
  2. ISOSORBIDE DINITRATE [Suspect]
     Dosage: ORAL
     Route: 048
  3. SPELEAR (FUDOSTEINE) [Suspect]
     Dosage: ORAL
     Route: 048
  4. ETODOLAC [Suspect]
     Dosage: ORAL
     Route: 048
  5. TIZANIDINE HCL [Suspect]
     Dosage: ORAL
     Route: 048
     Dates: end: 20040218
  6. MUCOSTA [Concomitant]
  7. EMPYNASE P [Concomitant]
  8. RESPLEN [Concomitant]

REACTIONS (1)
  - JAUNDICE [None]
